FAERS Safety Report 16737434 (Version 1)
Quarter: 2019Q3

REPORT INFORMATION
  Report Type: Spontaneous
  Country: US (occurrence: US)
  Receive Date: 20190823
  Receipt Date: 20190823
  Transmission Date: 20191005
  Serious: No
  Sender: FDA-Public Use
  Company Number: US-009507513-1908USA006131

PATIENT
  Age: 32 Year
  Sex: Female

DRUGS (5)
  1. PROGESTERONE. [Suspect]
     Active Substance: PROGESTERONE
  2. HUMIRA [Concomitant]
     Active Substance: ADALIMUMAB
  3. ENBREL [Concomitant]
     Active Substance: ETANERCEPT
  4. FOLLISTIM [Suspect]
     Active Substance: FOLLITROPIN
     Indication: INFERTILITY FEMALE
     Dosage: 75 INTERNATIONAL UNIT, AS DIRECTED
     Route: 058
     Dates: start: 20180629
  5. GANIRELIX ACETATE INJECTION [Suspect]
     Active Substance: GANIRELIX ACETATE
     Indication: INFERTILITY FEMALE
     Dosage: 250 MILLIGRAM, AS DIRECTED
     Route: 058
     Dates: start: 20190629

REACTIONS (1)
  - Abdominal distension [Unknown]
